FAERS Safety Report 21791830 (Version 1)
Quarter: 2022Q4

REPORT INFORMATION
  Report Type: Spontaneous
  Country: GB (occurrence: GB)
  Receive Date: 20221229
  Receipt Date: 20221229
  Transmission Date: 20230113
  Serious: Yes (Hospitalization, Other)
  Sender: FDA-Public Use
  Company Number: None

PATIENT
  Age: 80 Year
  Sex: Male
  Weight: 63.4 kg

DRUGS (5)
  1. TRANSDERM SCOP [Suspect]
     Active Substance: SCOPOLAMINE
     Indication: Salivary hypersecretion
     Dosage: 1 MILLIGRAM EVERY 72 HOURS APPLY ONE PATCH AS DIRECTED, CHANGE EVERY 72 HOURS, PHARMACEUTICAL FORM -
     Route: 065
     Dates: start: 20221207, end: 20221213
  2. AMOXICILLIN [Concomitant]
     Active Substance: AMOXICILLIN
     Indication: Urinary tract infection
     Dosage: 10 MILLILITERS, THRICE IN A DAY, SUGAR FREE 250MG/5ML
     Route: 048
     Dates: start: 20221018, end: 20221116
  3. CEPHALEXIN [Concomitant]
     Active Substance: CEPHALEXIN
     Indication: Urinary tract infection
     Dosage: 10 MILLILITERS, THREE TIMES IN A DAY, SUGAR FREE 250 MG/5ML
     Route: 048
     Dates: start: 20221026, end: 20221208
  4. SPIKEVAX [Concomitant]
     Active Substance: ELASOMERAN
     Indication: COVID-19 immunisation
     Dosage: 0.5 MILLILITRES, PROPRIETARY MEDICINAL PRODUCT NAME - BIVALENT SPIKEVAX
     Route: 030
     Dates: start: 20221013, end: 20221013
  5. POLYETHYLENE GLYCOL 3350\POTASSIUM CHLORIDE\SODIUM BICARBONATE\SODIUM [Concomitant]
     Active Substance: POLYETHYLENE GLYCOL 3350\POTASSIUM CHLORIDE\SODIUM BICARBONATE\SODIUM CHLORIDE
     Indication: Constipation
     Dosage: 1-2 DAILY ORANGE SACHETS SUGAR FREE, AS NECESSARY
     Route: 048
     Dates: start: 20221026, end: 20221208

REACTIONS (4)
  - Dehydration [Unknown]
  - Muscular weakness [Unknown]
  - Confusional state [Unknown]
  - Disorientation [Unknown]
